FAERS Safety Report 7705316-9 (Version None)
Quarter: 2011Q3

REPORT INFORMATION
  Report Type: 
  Country: None (occurrence: None)
  Receive Date: 20110824
  Receipt Date: 20101207
  Transmission Date: 20111222
  Serious: No
  Sender: FDA-Public Use
  Company Number: US-BAYER-2010-009072

PATIENT
  Sex: Female

DRUGS (1)
  1. MIRENA [Suspect]
     Dosage: UNK
     Dates: start: 20100601, end: 20101208

REACTIONS (20)
  - MENTAL DISORDER [None]
  - HEADACHE [None]
  - FEELING ABNORMAL [None]
  - MOOD SWINGS [None]
  - WEIGHT DECREASED [None]
  - NAUSEA [None]
  - AMENORRHOEA [None]
  - IRRITABILITY [None]
  - POST PROCEDURAL HAEMORRHAGE [None]
  - VAGINAL HAEMORRHAGE [None]
  - VOMITING [None]
  - ABDOMINAL PAIN [None]
  - CHEST DISCOMFORT [None]
  - DIARRHOEA [None]
  - DYSPNOEA [None]
  - EMOTIONAL DISTRESS [None]
  - FATIGUE [None]
  - BACK PAIN [None]
  - CRYING [None]
  - DECREASED APPETITE [None]
